FAERS Safety Report 6385112-8 (Version None)
Quarter: 2009Q4

REPORT INFORMATION
  Report Type: 
  Country: None (occurrence: None)
  Receive Date: 20091002
  Receipt Date: 20090925
  Transmission Date: 20100525
  Serious: Yes (Hospitalization, Other)
  Sender: FDA-Public Use
  Company Number: BR-ASTRAZENECA-2009SE15770

PATIENT
  Age: 16892 Day
  Sex: Male

DRUGS (6)
  1. ROSUVASTATIN CALCIUM [Suspect]
     Indication: CORONARY ARTERY DISEASE
     Route: 048
     Dates: start: 20090120
  2. SELOZOK [Concomitant]
     Indication: CARDIAC FAILURE
     Route: 048
     Dates: start: 20090115, end: 20090710
  3. SELOZOK [Concomitant]
     Route: 048
     Dates: start: 20090712
  4. SOMALGIN CARDIO [Concomitant]
     Indication: CARDIAC FAILURE
     Route: 048
     Dates: start: 20090115, end: 20090710
  5. SOMALGIN CARDIO [Concomitant]
     Route: 048
     Dates: start: 20090716
  6. ISSOSORBIDE MONONITRATE [Concomitant]
     Indication: CORONARY ARTERY DISEASE
     Route: 048
     Dates: start: 20090710, end: 20090711

REACTIONS (1)
  - CHOLELITHIASIS [None]
